FAERS Safety Report 13069453 (Version 29)
Quarter: 2020Q1

REPORT INFORMATION
  Report Type: Report from Study
  Country: CA (occurrence: CA)
  Receive Date: 20161228
  Receipt Date: 20200108
  Transmission Date: 20200409
  Serious: Yes (Hospitalization, Other)
  Sender: FDA-Public Use
  Company Number: PHHY2016CA177623

PATIENT
  Age: 72 Year
  Sex: Female

DRUGS (21)
  1. VITAMIN B12 [Concomitant]
     Active Substance: CYANOCOBALAMIN
     Indication: PRODUCT USED FOR UNKNOWN INDICATION
     Dosage: 1000 UG, QD
     Route: 048
     Dates: start: 20140424
  2. OMEGA 3 COMPLETE [Concomitant]
     Indication: PRODUCT USED FOR UNKNOWN INDICATION
     Dosage: 1000 MG, QD
     Route: 048
     Dates: start: 20140424
  3. HYDRALAZINE [Concomitant]
     Active Substance: HYDRALAZINE HYDROCHLORIDE
     Indication: PRODUCT USED FOR UNKNOWN INDICATION
     Dosage: 25 MG, BID
     Route: 048
     Dates: start: 20160917
  4. HYDROMORPHONE [Concomitant]
     Active Substance: HYDROMORPHONE
     Indication: PRODUCT USED FOR UNKNOWN INDICATION
     Dosage: (4 HOURS)
     Route: 065
  5. SANDOSTATIN LAR DEPOT [Suspect]
     Active Substance: OCTREOTIDE ACETATE
     Indication: CARCINOID TUMOUR
     Dosage: 30 MG, QMO (EVERY 4 WEEKS)
     Route: 030
     Dates: start: 20070913
  6. PANCRELIPASE. [Concomitant]
     Active Substance: PANCRELIPASE
     Indication: PRODUCT USED FOR UNKNOWN INDICATION
     Dosage: 8000 U, TID
     Route: 065
  7. AMCINONIDE. [Concomitant]
     Active Substance: AMCINONIDE
     Indication: PRODUCT USED FOR UNKNOWN INDICATION
     Route: 065
  8. RATIO-AMCINONIDE [Concomitant]
     Indication: SUNBURN
  9. JAMP ATENOLOL [Concomitant]
     Indication: PRODUCT USED FOR UNKNOWN INDICATION
     Dosage: 50 MG, QD
     Route: 048
     Dates: start: 20160917
  10. GLUCOSAMINE [Concomitant]
     Active Substance: GLUCOSAMINE
     Indication: PRODUCT USED FOR UNKNOWN INDICATION
     Dosage: 500 MG, UNK
     Route: 048
     Dates: start: 20140424
  11. SANDOSTATIN LAR DEPOT [Suspect]
     Active Substance: OCTREOTIDE ACETATE
     Dosage: 30 MG, QMO (EVERY 4 WEEKS)
     Route: 030
     Dates: start: 2019
  12. SANDOSTATIN LAR DEPOT [Suspect]
     Active Substance: OCTREOTIDE ACETATE
     Dosage: 30 MG, Q4W
     Route: 030
     Dates: start: 20190911
  13. LISINOPRIL SANDOZ [Suspect]
     Active Substance: LISINOPRIL
     Indication: BLOOD PRESSURE MEASUREMENT
     Dosage: 5 MG, QD
     Route: 048
     Dates: start: 20160917
  14. TEVA CLONIDINE [Concomitant]
     Active Substance: CLONIDINE
     Indication: PRODUCT USED FOR UNKNOWN INDICATION
     Dosage: 0.05 MG, BID (TWICE A DAY)
     Route: 048
     Dates: start: 20160716
  15. APO-AMLODIPINE [Concomitant]
     Active Substance: AMLODIPINE BESYLATE
     Indication: PRODUCT USED FOR UNKNOWN INDICATION
     Dosage: 7.5 MG, QD (1.5 PILLS)
     Route: 048
     Dates: start: 20160917
  16. RATIO-AMCINONIDE [Concomitant]
     Indication: ARTHROPOD BITE
     Dosage: 0.10 %, PRN
     Route: 065
     Dates: start: 2013
  17. MULTI VITAMIN [Concomitant]
     Active Substance: VITAMINS
     Indication: PRODUCT USED FOR UNKNOWN INDICATION
     Dosage: UNK UNK, QD
     Route: 048
     Dates: start: 20140424
  18. APO-AMLODIPINE [Concomitant]
     Active Substance: AMLODIPINE BESYLATE
     Dosage: 2.5 MG, QD (0.5 PILLS)
     Route: 048
     Dates: start: 20160917
  19. COTAZYM ECS [Concomitant]
     Indication: PRODUCT USED FOR UNKNOWN INDICATION
     Dosage: 9780 IU, TID
     Route: 065
     Dates: start: 20151021
  20. CLARITHROMYCIN. [Concomitant]
     Active Substance: CLARITHROMYCIN
     Indication: PRODUCT USED FOR UNKNOWN INDICATION
     Dosage: 500 MG, BID
     Route: 065
     Dates: start: 20180112
  21. SYMBICORT [Concomitant]
     Active Substance: BUDESONIDE\FORMOTEROL FUMARATE DIHYDRATE
     Indication: PRODUCT USED FOR UNKNOWN INDICATION
     Dosage: 2 PUFFS BID
     Route: 065
     Dates: start: 20180112

REACTIONS (27)
  - Blood pressure systolic increased [Unknown]
  - Limb discomfort [Recovering/Resolving]
  - Lymphoma [Unknown]
  - Eye infection [Unknown]
  - Nipple exudate bloody [Unknown]
  - Infection [Unknown]
  - Malaise [Unknown]
  - Pain in extremity [Recovering/Resolving]
  - Hyperhidrosis [Unknown]
  - Productive cough [Unknown]
  - Breast pain [Not Recovered/Not Resolved]
  - Needle issue [Unknown]
  - Heart rate decreased [Unknown]
  - Pyrexia [Unknown]
  - Feeling hot [Unknown]
  - Arthralgia [Recovering/Resolving]
  - Cough [Unknown]
  - Muscle spasms [Unknown]
  - Insomnia [Unknown]
  - Asthenia [Unknown]
  - Cyst [Unknown]
  - Haemangioma [Unknown]
  - Blood pressure decreased [Unknown]
  - Vitreous floaters [Unknown]
  - Fatigue [Recovering/Resolving]
  - Dizziness [Unknown]
  - Dyskinesia [Recovering/Resolving]

NARRATIVE: CASE EVENT DATE: 2016
